FAERS Safety Report 17564916 (Version 3)
Quarter: 2020Q3

REPORT INFORMATION
  Report Type: Spontaneous
  Country: HU (occurrence: HU)
  Receive Date: 20200320
  Receipt Date: 20200728
  Transmission Date: 20201102
  Serious: Yes (Death, Life-Threatening, Hospitalization, Other)
  Sender: FDA-Public Use
  Company Number: HU-AXELLIA-003043

PATIENT
  Age: 37 Year
  Sex: Female

DRUGS (7)
  1. CONVULEX [VALPROIC ACID] [Interacting]
     Active Substance: VALPROIC ACID
     Indication: EPILEPSY
  2. DEPAKIN CHRONO [Interacting]
     Active Substance: VALPROIC ACID
     Indication: EPILEPSY
  3. EPITRIGIN [Interacting]
     Active Substance: LAMOTRIGINE
     Indication: EPILEPSY
     Dosage: TITRATING UPWARDS FROM A LOW DOSE, INITIALLY AT 12.5 MG/DAY, FOLLOWED BY 25 MG/DAY
     Route: 048
     Dates: start: 201802
  4. LEVETIRACETAM. [Interacting]
     Active Substance: LEVETIRACETAM
     Indication: PRODUCT USED FOR UNKNOWN INDICATION
     Route: 065
  5. VANCOMYCIN [Suspect]
     Active Substance: VANCOMYCIN
     Indication: PRODUCT USED FOR UNKNOWN INDICATION
     Route: 065
  6. LAMICTAL [Interacting]
     Active Substance: LAMOTRIGINE
     Indication: EPILEPSY
  7. CARBAPENEM [Interacting]
     Active Substance: UNSPECIFIED INGREDIENT
     Indication: PRODUCT USED FOR UNKNOWN INDICATION

REACTIONS (5)
  - Skin necrosis [Unknown]
  - Drug interaction [Unknown]
  - Influenza like illness [Fatal]
  - Toxic epidermal necrolysis [Fatal]
  - Sepsis [Fatal]

NARRATIVE: CASE EVENT DATE: 2018
